FAERS Safety Report 7201191-X (Version None)
Quarter: 2010Q4

REPORT INFORMATION
  Report Type: 
  Country: None (occurrence: None)
  Receive Date: 20101229
  Receipt Date: 20101223
  Transmission Date: 20110411
  Serious: Yes (Death)
  Sender: FDA-Public Use
  Company Number: US-CELGENEUS-163-21880-10101281

PATIENT
  Sex: Male

DRUGS (5)
  1. REVLIMID [Suspect]
     Indication: MULTIPLE MYELOMA
     Route: 048
     Dates: start: 20100914, end: 20100101
  2. MIRALAX [Concomitant]
     Indication: CONSTIPATION
     Route: 065
     Dates: start: 20100801
  3. ZOMETA [Concomitant]
     Route: 051
     Dates: start: 20100915, end: 20100915
  4. DECADRON [Concomitant]
     Indication: MULTIPLE MYELOMA
     Route: 051
     Dates: start: 20100915, end: 20101006
  5. VICODIN [Concomitant]
     Indication: PAIN
     Route: 048
     Dates: start: 20100801

REACTIONS (1)
  - MULTIPLE MYELOMA [None]
